FAERS Safety Report 9171731 (Version 2)
Quarter: 2013Q1

REPORT INFORMATION
  Report Type: Spontaneous
  Country: GB (occurrence: None)
  Receive Date: 20130318
  Receipt Date: 20130327
  Transmission Date: 20140127
  Serious: Yes (Death)
  Sender: FDA-Public Use
  Company Number: 2013-03766

PATIENT
  Age: 52 Year
  Sex: Male
  Weight: 79 kg

DRUGS (6)
  1. SIMVASTATIN [Suspect]
     Indication: BLOOD CHOLESTEROL INCREASED
     Dosage: 40 MG, DAILY AT NIGHTON IT FOR SEVERAL YEARS, ORAL
     Route: 048
     Dates: end: 20120607
  2. MIRTAZAPINE [Suspect]
     Indication: DEPRESSION
     Route: 048
     Dates: end: 20120607
  3. FLUOXETINE HYDROCHLORIDE [Suspect]
     Indication: ANXIETY
  4. LOSARTAN (LOSARTAN) [Concomitant]
  5. CO-TENIDONE (ATENOLOL, CHLORTALIDONE) [Concomitant]
  6. LOSEC            /00661201/ (OMEPRAZOLE) [Concomitant]

REACTIONS (13)
  - Muscle spasms [None]
  - Myalgia [None]
  - Neck pain [None]
  - Pain in jaw [None]
  - Paraesthesia [None]
  - Completed suicide [None]
  - Blood creatine phosphokinase increased [None]
  - Inflammation [None]
  - Anxiety [None]
  - Economic problem [None]
  - Depression [None]
  - Drug interaction [None]
  - Anxiety [None]
